FAERS Safety Report 8624065 (Version 2)
Quarter: 2012Q4

REPORT INFORMATION
  Report Type: 
  Country: US (occurrence: US)
  Receive Date: 20120620
  Receipt Date: 20120903
  Transmission Date: 20130627
  Serious: Yes (Hospitalization, Disabling, Other)
  Sender: FDA-Public Use
  Company Number: US-PFIZER INC-2012147179

PATIENT
  Age: 27 Year
  Sex: Male

DRUGS (2)
  1. CHANTIX [Suspect]
     Indication: SMOKING CESSATION THERAPY
     Dosage: 0.5 and 1mg
     Dates: start: 200901, end: 2009
  2. CHANTIX [Suspect]
     Dosage: 0.5 and 1mg
     Dates: start: 200905, end: 2009

REACTIONS (8)
  - Bipolar disorder [Not Recovered/Not Resolved]
  - Anxiety [Not Recovered/Not Resolved]
  - Hallucination [Unknown]
  - Mental disorder [Unknown]
  - Post-traumatic stress disorder [Not Recovered/Not Resolved]
  - Aggression [Recovered/Resolved]
  - Depression [Not Recovered/Not Resolved]
  - Insomnia [Unknown]
